FAERS Safety Report 8823578 (Version 1)
Quarter: 2012Q4

REPORT INFORMATION
  Report Type: 
  Country: US (occurrence: US)
  Receive Date: 20121003
  Receipt Date: 20121003
  Transmission Date: 20130627
  Serious: No
  Sender: FDA-Public Use
  Company Number: US-VERTEX PHARMACEUTICAL INC.-2012-021045

PATIENT
  Sex: Male
  Weight: 93 kg

DRUGS (6)
  1. VX-950 [Suspect]
     Indication: HEPATITIS C
     Dosage: 750 mg, tid
     Route: 048
     Dates: start: 20120624
  2. PEGASYS [Concomitant]
     Indication: HEPATITIS C
     Dosage: 180 ?g, UNK
     Dates: start: 20120624
  3. RIBAPAK [Concomitant]
     Indication: HEPATITIS C
     Dosage: 600 mg, bid
     Route: 048
     Dates: start: 20120624
  4. CENTRUM                            /00554501/ [Concomitant]
     Dosage: 1 DF, qd
     Route: 048
  5. ALLOPURINOL [Concomitant]
     Dosage: 1 DF, qd
     Route: 048
  6. BENICAR [Concomitant]
     Dosage: 1 DF, qd
     Route: 048

REACTIONS (2)
  - Irritability [Unknown]
  - Fatigue [Unknown]
